FAERS Safety Report 18829326 (Version 1)
Quarter: 2021Q1

REPORT INFORMATION
  Report Type: Spontaneous
  Country: US (occurrence: US)
  Receive Date: 20210201
  Receipt Date: 20210201
  Transmission Date: 20210419
  Serious: Yes (Other)
  Sender: FDA-Public Use
  Company Number: US-ABBVIE-20K-163-3559254-00

PATIENT
  Sex: Female

DRUGS (1)
  1. HUMIRA [Suspect]
     Active Substance: ADALIMUMAB
     Indication: HIDRADENITIS
     Route: 058

REACTIONS (6)
  - Rheumatoid arthritis [Recovering/Resolving]
  - Overweight [Not Recovered/Not Resolved]
  - Pain [Unknown]
  - Lower limb fracture [Unknown]
  - Hidradenitis [Not Recovered/Not Resolved]
  - Back pain [Unknown]
